FAERS Safety Report 10562073 (Version 2)
Quarter: 2014Q4

REPORT INFORMATION
  Report Type: Spontaneous
  Country: US (occurrence: US)
  Receive Date: 20141104
  Receipt Date: 20141119
  Transmission Date: 20150529
  Serious: Yes (Other)
  Sender: FDA-Public Use
  Company Number: US-BEH-2014045945

PATIENT
  Age: 85 Year
  Sex: Male

DRUGS (2)
  1. HUMATE-P [Suspect]
     Active Substance: HUMAN COAGULATION FACTOR VIII/VON WILLEBRAND FACTOR COMPLEX
     Indication: GASTROINTESTINAL HAEMORRHAGE
     Dosage: 2 TIMES WEEKLY PRN
     Route: 042
  2. HUMATE-P [Suspect]
     Active Substance: HUMAN COAGULATION FACTOR VIII/VON WILLEBRAND FACTOR COMPLEX
     Indication: VON WILLEBRAND^S DISEASE
     Dosage: 2 TIMES WEEKLY PRN
     Route: 042

REACTIONS (2)
  - Malignant neoplasm of unknown primary site [Unknown]
  - Cancer surgery [Unknown]

NARRATIVE: CASE EVENT DATE: 20141015
